FAERS Safety Report 9895290 (Version 1)
Quarter: 2014Q1

REPORT INFORMATION
  Report Type: Spontaneous
  Country: US (occurrence: US)
  Receive Date: 20140213
  Receipt Date: 20140213
  Transmission Date: 20141002
  Serious: No
  Sender: FDA-Public Use
  Company Number: US-BRISTOL-MYERS SQUIBB COMPANY-18721050

PATIENT
  Age: 51 Year
  Sex: Female
  Weight: 68.03 kg

DRUGS (2)
  1. ORENCIA FOR INJ [Suspect]
     Indication: RHEUMATOID ARTHRITIS
     Route: 042
  2. SIMVASTATIN [Suspect]
     Indication: BLOOD CHOLESTEROL
     Dosage: DATE OF LAST INFUSION:  04MAR2013?ONCE A NIGHT

REACTIONS (2)
  - Muscle spasms [Unknown]
  - Weight decreased [Unknown]
